FAERS Safety Report 4522398-6 (Version None)
Quarter: 2004Q4

REPORT INFORMATION
  Report Type: 
  Country: None (occurrence: None)
  Receive Date: 20041209
  Receipt Date: 20041129
  Transmission Date: 20050328
  Serious: Yes (Other)
  Sender: FDA-Public Use
  Company Number: FR-BRISTOL-MYERS SQUIBB COMPANY-12781233

PATIENT
  Age: 40 Year
  Sex: Female

DRUGS (4)
  1. REYATAZ [Suspect]
     Route: 048
  2. EPIVIR [Suspect]
     Route: 048
  3. NORVIR [Suspect]
  4. ZIAGEN [Suspect]

REACTIONS (2)
  - DIARRHOEA [None]
  - PANCREATITIS [None]
